FAERS Safety Report 19532138 (Version 3)
Quarter: 2021Q3

REPORT INFORMATION
  Report Type: Spontaneous
  Country: US (occurrence: US)
  Receive Date: 20210713
  Receipt Date: 20210730
  Transmission Date: 20211014
  Serious: Yes (Death, Hospitalization, Other)
  Sender: FDA-Public Use
  Company Number: US-UNITED THERAPEUTICS-UNT-2021-012813

PATIENT
  Age: 48 Year
  Sex: Female
  Weight: 54.88 kg

DRUGS (2)
  1. REMODULIN [Suspect]
     Active Substance: TREPROSTINIL
     Dosage: 0.040 ?G/KG, CONTINUING
     Route: 041
     Dates: start: 2021
  2. REMODULIN [Suspect]
     Active Substance: TREPROSTINIL
     Indication: PORTOPULMONARY HYPERTENSION
     Dosage: UNK, CONTINUING
     Route: 041
     Dates: start: 20210115

REACTIONS (7)
  - Death [Fatal]
  - Oedema peripheral [Unknown]
  - Cardiac failure [Unknown]
  - Peripheral venous disease [Unknown]
  - Therapeutic response decreased [Unknown]
  - Condition aggravated [Unknown]
  - Ascites [Unknown]

NARRATIVE: CASE EVENT DATE: 2021
